FAERS Safety Report 4351122-5 (Version None)
Quarter: 2004Q2

REPORT INFORMATION
  Report Type: 
  Country: None (occurrence: None)
  Receive Date: 20040430
  Receipt Date: 20030507
  Transmission Date: 20050107
  Serious: Yes (Hospitalization)
  Sender: FDA-Public Use
  Company Number: US-MERCK-0305USA01302

PATIENT
  Age: 66 Year
  Sex: Male

DRUGS (7)
  1. DERMATOLOGIC (UNSPECIFIED) [Concomitant]
     Route: 065
  2. FELODIPINE [Concomitant]
     Route: 065
  3. FOSINOPRIL SODIUM [Concomitant]
     Route: 065
  4. HERBS (UNSPECIFIED) [Concomitant]
     Route: 065
     Dates: start: 20011101, end: 20011101
  5. HYDRODIURIL [Concomitant]
     Route: 048
  6. METOPROLOL [Concomitant]
     Route: 065
  7. ZOCOR [Suspect]
     Route: 048
     Dates: start: 19990101, end: 20011101

REACTIONS (8)
  - BLOOD BICARBONATE INCREASED [None]
  - BLOOD SODIUM INCREASED [None]
  - BLOOD URINE [None]
  - HAEMATOCRIT DECREASED [None]
  - HYPERTENSION [None]
  - HYPOKALAEMIA [None]
  - RASH [None]
  - RHABDOMYOLYSIS [None]
